FAERS Safety Report 7093965-3 (Version None)
Quarter: 2010Q4

REPORT INFORMATION
  Report Type: 
  Country: None (occurrence: None)
  Receive Date: 20101101
  Receipt Date: 20101007
  Transmission Date: 20110411
  Serious: Yes (Hospitalization)
  Sender: FDA-Public Use
  Company Number: BR-021303

PATIENT
  Age: 23 Year
  Sex: Male

DRUGS (1)
  1. BUSULFAN [Suspect]
     Indication: PROPHYLAXIS
     Dosage: 4 MG/KG (1 MG/KG, 4 IN 1 D) ORAL
     Route: 048
     Dates: start: 20100701, end: 20100701

REACTIONS (7)
  - DRUG ADMINISTRATION ERROR [None]
  - MOUTH HAEMORRHAGE [None]
  - MUCOSAL INFLAMMATION [None]
  - OEDEMA MOUTH [None]
  - OFF LABEL USE [None]
  - THERAPEUTIC RESPONSE UNEXPECTED [None]
  - WOUND [None]
